FAERS Safety Report 6311199-4 (Version None)
Quarter: 2009Q3

REPORT INFORMATION
  Report Type: 
  Country: None (occurrence: None)
  Receive Date: 20090817
  Receipt Date: 20090806
  Transmission Date: 20100115
  Serious: Yes (Disabling)
  Sender: FDA-Public Use
  Company Number: GB-AMGEN-US359512

PATIENT
  Sex: Male
  Weight: 77 kg

DRUGS (6)
  1. ENBREL [Suspect]
     Indication: JUVENILE ARTHRITIS
     Route: 058
     Dates: start: 20081215
  2. METHOTREXATE [Concomitant]
     Route: 048
     Dates: start: 20081101
  3. METHOTREXATE [Concomitant]
     Route: 058
     Dates: start: 20071001, end: 20080601
  4. METHOTREXATE [Concomitant]
     Route: 048
     Dates: start: 20070601, end: 20071001
  5. PREDNISOLONE [Concomitant]
  6. PREDNISOLONE [Concomitant]
     Route: 048
     Dates: start: 20081101

REACTIONS (3)
  - ECZEMA [None]
  - INJECTION SITE PRURITUS [None]
  - INJECTION SITE RASH [None]
